FAERS Safety Report 6391942-9 (Version None)
Quarter: 2009Q4

REPORT INFORMATION
  Report Type: 
  Country: None (occurrence: None)
  Receive Date: 20091007
  Receipt Date: 20090928
  Transmission Date: 20100525
  Serious: Yes (Other)
  Sender: FDA-Public Use
  Company Number: A0809431A

PATIENT
  Sex: Male

DRUGS (2)
  1. LAMICTAL [Suspect]
     Dosage: 200MG TWICE PER DAY
     Route: 065
  2. TRILEPTAL [Suspect]
     Dosage: 600MG THREE TIMES PER DAY
     Route: 065

REACTIONS (4)
  - FEAR [None]
  - HALLUCINATIONS, MIXED [None]
  - PANIC ATTACK [None]
  - SUICIDAL IDEATION [None]
